FAERS Safety Report 5565317-6 (Version None)
Quarter: 2007Q4

REPORT INFORMATION
  Report Type: 
  Country: None (occurrence: None)
  Receive Date: 20071218
  Receipt Date: 20030605
  Transmission Date: 20080405
  Serious: Yes (Death, Other)
  Sender: FDA-Public Use
  Company Number: GB-ROCHE-339521

PATIENT
  Age: 76 Year
  Sex: Female

DRUGS (3)
  1. RIVOTRIL [Suspect]
     Route: 058
     Dates: start: 20030416, end: 20030416
  2. DIAMORPHINE [Concomitant]
     Route: 058
     Dates: start: 20030416
  3. HALOPERIDOL [Concomitant]
     Route: 058
     Dates: start: 20030416

REACTIONS (2)
  - SALIVARY GLAND CANCER [None]
  - SEDATION [None]
